FAERS Safety Report 7758816-X (Version None)
Quarter: 2011Q3

REPORT INFORMATION
  Report Type: 
  Country: None (occurrence: None)
  Receive Date: 20110916
  Receipt Date: 20110916
  Transmission Date: 20111222
  Serious: Yes (Death, Hospitalization)
  Sender: FDA-Public Use
  Company Number: None

PATIENT
  Age: 69 Year
  Sex: Male
  Weight: 196.2 kg

DRUGS (4)
  1. BELINOSTAT (PDX-101) [Suspect]
     Indication: LUNG CARCINOMA CELL TYPE UNSPECIFIED STAGE IV
     Dosage: 800MG/M2
     Dates: start: 20110531, end: 20110602
  2. BEVACIZUMAB [Suspect]
     Indication: LUNG NEOPLASM MALIGNANT
     Dosage: 15MG/KG
     Dates: start: 20110602
  3. PACLITAXEL [Suspect]
     Indication: LUNG NEOPLASM MALIGNANT
     Dosage: 200MG/M2
     Dates: start: 20110602
  4. CARBOPLATIN [Suspect]
     Indication: LUNG CARCINOMA CELL TYPE UNSPECIFIED STAGE IV
     Dosage: AUC 6
     Dates: start: 20110602

REACTIONS (2)
  - DEATH [None]
  - CONCOMITANT DISEASE PROGRESSION [None]
